FAERS Safety Report 5971179-5 (Version None)
Quarter: 2008Q4

REPORT INFORMATION
  Report Type: 
  Country: None (occurrence: None)
  Receive Date: 20081128
  Receipt Date: 20081126
  Transmission Date: 20090506
  Serious: Yes (Hospitalization)
  Sender: FDA-Public Use
  Company Number: JP-JNJFOC-20081106265

PATIENT
  Age: 80 Year
  Sex: Male

DRUGS (2)
  1. CRAVIT [Suspect]
     Indication: DRUG USE FOR UNKNOWN INDICATION
     Dosage: INITIATED IN EARLY NOVEMBER
     Route: 048
  2. UNKNOWN MEDICATION [Suspect]
     Indication: DRUG USE FOR UNKNOWN INDICATION
     Dosage: INITIATED IN EARLY NOVEMBER
     Route: 048

REACTIONS (1)
  - INTERSTITIAL LUNG DISEASE [None]
